FAERS Safety Report 5195734-8 (Version None)
Quarter: 2007Q1

REPORT INFORMATION
  Report Type: 
  Country: None (occurrence: None)
  Receive Date: 20070102
  Receipt Date: 20061220
  Transmission Date: 20070707
  Serious: Yes (Hospitalization)
  Sender: FDA-Public Use
  Company Number: US-ROCHE-473654

PATIENT
  Sex: Female

DRUGS (1)
  1. NAPROXEN [Suspect]
     Indication: DRUG USE FOR UNKNOWN INDICATION
     Route: 048
     Dates: start: 19981208

REACTIONS (8)
  - BLADDER INJURY [None]
  - DIZZINESS [None]
  - EXTRAVASATION [None]
  - LOSS OF CONSCIOUSNESS [None]
  - PERICARDIAL HAEMORRHAGE [None]
  - PYREXIA [None]
  - TACHYCARDIA [None]
  - UTERINE LEIOMYOMA [None]
